FAERS Safety Report 4905501-5 (Version None)
Quarter: 2006Q1

REPORT INFORMATION
  Report Type: 
  Country: None (occurrence: None)
  Receive Date: 20060203
  Receipt Date: 20060123
  Transmission Date: 20060701
  Serious: Yes (Death)
  Sender: FDA-Public Use
  Company Number: MEDI-0004075

PATIENT
  Age: 4 Month
  Sex: Female

DRUGS (3)
  1. SYNAGIS (LIQUID) (PALIVIZUMAB) [Suspect]
     Indication: ANTIVIRAL PROPHYLAXIS
     Dosage: SEE IMAGE
     Route: 030
     Dates: start: 20051222, end: 20060123
  2. SYNAGIS (LIQUID) (PALIVIZUMAB) [Suspect]
     Indication: ANTIVIRAL PROPHYLAXIS
     Dosage: SEE IMAGE
     Route: 030
     Dates: start: 20051222
  3. SYNAGIS (LIQUID) (PALIVIZUMAB) [Suspect]

REACTIONS (1)
  - ASPIRATION [None]
